FAERS Safety Report 9925190 (Version 1)
Quarter: 2014Q1

REPORT INFORMATION
  Report Type: Spontaneous
  Country: US (occurrence: None)
  Receive Date: 20140225
  Receipt Date: 20140225
  Transmission Date: 20141002
  Serious: Yes (Other)
  Sender: FDA-Public Use
  Company Number: None

PATIENT
  Age: 57 Year
  Sex: Female

DRUGS (8)
  1. TECFIDERA [Suspect]
     Indication: MULTIPLE SCLEROSIS
     Dosage: 1 CAPSULE BID PO
     Route: 048
     Dates: start: 20140206
  2. VITAMIN D [Concomitant]
  3. RAMIPRIL [Concomitant]
  4. CALCIUM [Concomitant]
  5. ATORVASTATIN [Concomitant]
  6. ASPIRIN [Concomitant]
  7. METOPROLOL [Concomitant]
  8. LEVOTHYRXINE [Concomitant]

REACTIONS (2)
  - Nausea [None]
  - Headache [None]
